FAERS Safety Report 15603096 (Version 1)
Quarter: 2018Q4

REPORT INFORMATION
  Report Type: Spontaneous
  Country: US (occurrence: US)
  Receive Date: 20181109
  Receipt Date: 20181109
  Transmission Date: 20190205
  Serious: No
  Sender: FDA-Public Use
  Company Number: US-SHIRE-US201843402

PATIENT
  Age: 56 Year
  Sex: Female
  Weight: 54.42 kg

DRUGS (3)
  1. TEMAZEPAM. [Concomitant]
     Active Substance: TEMAZEPAM
     Indication: SLEEP DISORDER
  2. XIIDRA [Suspect]
     Active Substance: LIFITEGRAST
     Indication: DRY EYE
     Dosage: 1 GTT, 2X/DAY:BID
     Route: 047
     Dates: start: 201709, end: 201710
  3. XIIDRA [Suspect]
     Active Substance: LIFITEGRAST
     Dosage: 1 GTT, 2X/DAY:BID
     Route: 047
     Dates: start: 20181103, end: 20181103

REACTIONS (4)
  - Instillation site discharge [Recovered/Resolved]
  - Instillation site pain [Not Recovered/Not Resolved]
  - Drug ineffective [Recovered/Resolved]
  - Instillation site erythema [Not Recovered/Not Resolved]

NARRATIVE: CASE EVENT DATE: 201709
